APPROVED DRUG PRODUCT: METHYLPHENIDATE HYDROCHLORIDE
Active Ingredient: METHYLPHENIDATE HYDROCHLORIDE
Strength: 5MG/5ML
Dosage Form/Route: SOLUTION;ORAL
Application: A211647 | Product #001 | TE Code: AA
Applicant: ALKEM LABORATORIES LTD
Approved: Mar 30, 2020 | RLD: No | RS: No | Type: RX